FAERS Safety Report 8062711-9 (Version None)
Quarter: 2012Q1

REPORT INFORMATION
  Report Type: 
  Country: None (occurrence: None)
  Receive Date: 20120123
  Receipt Date: 20120117
  Transmission Date: 20120608
  Serious: Yes (Death, Other)
  Sender: FDA-Public Use
  Company Number: IN-NOVOPROD-342333

PATIENT
  Age: 66 Year
  Sex: Female
  Weight: 75 kg

DRUGS (2)
  1. LIRAGLUTIDE FLEXPEN [Suspect]
     Dosage: 0.6 MG, QD
     Route: 058
     Dates: start: 20111226
  2. LIRAGLUTIDE FLEXPEN [Suspect]
     Indication: TYPE 2 DIABETES MELLITUS
     Dosage: 0.6 MG, QD
     Route: 058
     Dates: start: 20111201, end: 20111223

REACTIONS (1)
  - RENAL FAILURE ACUTE [None]
